FAERS Safety Report 10219216 (Version 2)
Quarter: 2014Q2

REPORT INFORMATION
  Report Type: Report from Study
  Country: FR (occurrence: FR)
  Receive Date: 20140605
  Receipt Date: 20140605
  Transmission Date: 20141212
  Serious: Yes (Hospitalization)
  Sender: FDA-Public Use
  Company Number: FR-DSJP-DSM-2014-00102

PATIENT
  Sex: 0

DRUGS (2)
  1. SEVIKAR 40 MG/ 10 MG [Suspect]
     Indication: HYPERTENSION
     Dosage: EVERY
     Route: 048
  2. SEVIKAR 40 MG/ 10 MG [Suspect]
     Dosage: 40/10 MG
     Route: 048
     Dates: start: 20111115, end: 20130707

REACTIONS (5)
  - Weight decreased [Unknown]
  - Diarrhoea [Recovered/Resolved]
  - Renal failure [Recovered/Resolved]
  - Vomiting [Unknown]
  - Abdominal pain [Unknown]
